FAERS Safety Report 12237802 (Version 1)
Quarter: 2016Q2

REPORT INFORMATION
  Report Type: Spontaneous
  Country: US (occurrence: None)
  Receive Date: 20160404
  Receipt Date: 20160404
  Transmission Date: 20160815
  Serious: Yes (Life-Threatening)
  Sender: FDA-Public Use
  Company Number: None

PATIENT
  Age: 21 Year
  Sex: Female
  Weight: 53.52 kg

DRUGS (3)
  1. TRAMADOL HCL [Suspect]
     Active Substance: TRAMADOL HYDROCHLORIDE
     Indication: TOOTHACHE
     Dosage: 20 TABLES(S) EVERY 4 HOURS
     Route: 048
     Dates: start: 20160401, end: 20160402
  2. GIANVIA [Concomitant]
  3. TRAMADOL HCL [Suspect]
     Active Substance: TRAMADOL HYDROCHLORIDE
     Indication: WISDOM TEETH REMOVAL
     Dosage: 20 TABLES(S) EVERY 4 HOURS
     Route: 048
     Dates: start: 20160401, end: 20160402

REACTIONS (10)
  - Cold sweat [None]
  - Asthenia [None]
  - Fatigue [None]
  - Nausea [None]
  - Vomiting [None]
  - Abnormal dreams [None]
  - Abasia [None]
  - Dizziness [None]
  - Somnolence [None]
  - Feeding disorder [None]

NARRATIVE: CASE EVENT DATE: 20160402
